FAERS Safety Report 8934762 (Version 2)
Quarter: 2012Q4

REPORT INFORMATION
  Report Type: 
  Country: US (occurrence: US)
  Receive Date: 20121129
  Receipt Date: 20121206
  Transmission Date: 20130627
  Serious: Yes (Hospitalization)
  Sender: FDA-Public Use
  Company Number: US-PFIZER INC-2012220278

PATIENT
  Age: 77 Year
  Sex: Male
  Weight: 95.24 kg

DRUGS (10)
  1. CELECOXIB [Suspect]
     Indication: OSTEOARTHRITIS
     Dosage: 100 mg, 2x/day
     Route: 048
     Dates: start: 20120711, end: 20120823
  2. ASPIRIN [Suspect]
     Indication: PROPHYLAXIS
     Dosage: 81 mg, 1x/day
     Route: 048
     Dates: start: 1980
  3. NEXIUM [Concomitant]
     Indication: PROPHYLAXIS
     Dosage: 40 mg, QD
     Route: 048
     Dates: start: 20120711
  4. TYLENOL [Concomitant]
     Indication: PAIN
     Dosage: 650 mg, as needed
     Route: 048
     Dates: start: 2011
  5. XANAX [Concomitant]
     Indication: ANXIETY
     Dosage: 0.5 mg, as needed
     Route: 048
     Dates: start: 1980
  6. CLARINEX [Concomitant]
     Indication: ASTHMA
     Dosage: 5 mg, 1x/day
     Route: 048
     Dates: start: 2011
  7. LYRICA [Concomitant]
     Indication: FOOT DISCOMFORT
     Dosage: 75 mg, 1x/day
     Route: 048
     Dates: start: 2012
  8. METOPROLOL SUCCINATE EXTENDED RELEASE [Concomitant]
     Indication: HYPERTENSION
     Dosage: 50 mg, 1x/day
     Route: 048
     Dates: start: 1977
  9. SIMVASTATIN [Concomitant]
     Indication: DYSLIPIDEMIA
     Dosage: 20 mg, 1x/day
     Route: 048
     Dates: start: 1977
  10. AMBIEN [Concomitant]
     Indication: INSOMNIA
     Dosage: 10 mg, as needed
     Route: 048
     Dates: start: 1970

REACTIONS (2)
  - Ileal ulcer [Recovered/Resolved]
  - Gastrointestinal haemorrhage [Recovered/Resolved]
